FAERS Safety Report 5970719-X (Version None)
Quarter: 2008Q4

REPORT INFORMATION
  Report Type: 
  Country: None (occurrence: None)
  Receive Date: 20081126
  Receipt Date: 20081106
  Transmission Date: 20090506
  Serious: No
  Sender: FDA-Public Use
  Company Number: US-ABBOTT-08P-163-0486792-00

PATIENT
  Sex: Male
  Weight: 95.34 kg

DRUGS (4)
  1. SIMCOR [Suspect]
     Indication: BLOOD CHOLESTEROL INCREASED
     Route: 048
     Dates: start: 20080801
  2. SIMCOR [Suspect]
     Indication: HIGH DENSITY LIPOPROTEIN DECREASED
  3. DIOVAN HCT [Concomitant]
     Indication: HYPERTENSION
  4. CLOTRIMAZOLE [Concomitant]
     Indication: HYPERTENSION

REACTIONS (1)
  - URINE ABNORMALITY [None]
